FAERS Safety Report 6825000-3 (Version None)
Quarter: 2010Q3

REPORT INFORMATION
  Report Type: 
  Country: None (occurrence: None)
  Receive Date: 20100708
  Receipt Date: 20070104
  Transmission Date: 20110219
  Serious: No
  Sender: FDA-Public Use
  Company Number: US-PFIZER INC-2007002261

PATIENT
  Sex: Female
  Weight: 63.5 kg

DRUGS (18)
  1. CHANTIX [Suspect]
     Indication: SMOKING CESSATION THERAPY
     Dates: start: 20061110, end: 20061225
  2. TERIPARATIDE [Concomitant]
  3. ADVAIR DISKUS 100/50 [Concomitant]
  4. MONTELUKAST SODIUM [Concomitant]
  5. ZYRTEC [Concomitant]
  6. VICODIN [Concomitant]
  7. LUNESTA [Concomitant]
  8. XANAX [Concomitant]
  9. CARDIZEM [Concomitant]
  10. CRESTOR [Concomitant]
  11. IMDUR [Concomitant]
  12. METFORMIN HCL [Concomitant]
  13. HYOSCYAMINE [Concomitant]
  14. CYMBALTA [Concomitant]
  15. VITAMIN C [Concomitant]
  16. VITAMIN E [Concomitant]
  17. MAGNESIUM OXIDE [Concomitant]
  18. STOOL SOFTENER [Concomitant]

REACTIONS (3)
  - DIZZINESS [None]
  - NAUSEA [None]
  - VOMITING [None]
